FAERS Safety Report 8584016-X (Version None)
Quarter: 2012Q3

REPORT INFORMATION
  Report Type: 
  Country: None (occurrence: None)
  Receive Date: 20120810
  Receipt Date: 20120726
  Transmission Date: 20120928
  Serious: Yes (Other)
  Sender: FDA-Public Use
  Company Number: US-009507513-1207USA011561

PATIENT

DRUGS (4)
  1. VICTRELIS [Suspect]
     Route: 048
  2. COPEGUS [Suspect]
     Route: 048
  3. PROMETHAZINE [Suspect]
  4. PEGINTERFERON ALFA-2A [Suspect]

REACTIONS (15)
  - NAUSEA [None]
  - ASTHENIA [None]
  - FEELING ABNORMAL [None]
  - DRUG INEFFECTIVE [None]
  - HYPERHIDROSIS [None]
  - DRUG HYPERSENSITIVITY [None]
  - DYSPNOEA [None]
  - SCRATCH [None]
  - SYNCOPE [None]
  - WHITE BLOOD CELL COUNT DECREASED [None]
  - INJECTION SITE REACTION [None]
  - RED BLOOD CELL COUNT DECREASED [None]
  - MIDDLE INSOMNIA [None]
  - DIZZINESS [None]
  - UNEVALUABLE EVENT [None]
